FAERS Safety Report 15127069 (Version 1)
Quarter: 2018Q3

REPORT INFORMATION
  Report Type: Spontaneous
  Country: US (occurrence: US)
  Receive Date: 20180710
  Receipt Date: 20180710
  Transmission Date: 20181010
  Serious: No
  Sender: FDA-Public Use
  Company Number: US-BAYER-2018-126859

PATIENT
  Age: 81 Year
  Sex: Female
  Weight: 77 kg

DRUGS (5)
  1. ATENOLOL. [Concomitant]
     Active Substance: ATENOLOL
  2. COQ10 [Concomitant]
     Active Substance: UBIDECARENONE
  3. VITAMIN D [Concomitant]
     Active Substance: CHOLECALCIFEROL
  4. OXYBUTYNIN. [Concomitant]
     Active Substance: OXYBUTYNIN CHLORIDE
  5. ALEVE [Suspect]
     Active Substance: NAPROXEN SODIUM
     Indication: PYREXIA
     Dosage: 1 DF, UNK (1 AS NEEDED)
     Route: 048
     Dates: start: 20180702

REACTIONS (1)
  - Expired product administered [Unknown]

NARRATIVE: CASE EVENT DATE: 20180702
